FAERS Safety Report 19962621 (Version 1)
Quarter: 2021Q4

REPORT INFORMATION
  Report Type: Spontaneous
  Country: US (occurrence: US)
  Receive Date: 20211013
  Receipt Date: 20211013
  Transmission Date: 20220303
  Serious: Yes (Death)
  Sender: FDA-Public Use
  Company Number: None

PATIENT
  Age: 64 Year
  Sex: Male
  Weight: 104.33 kg

DRUGS (14)
  1. HERBALS\MITRAGYNINE [Suspect]
     Active Substance: HERBALS\MITRAGYNINE
     Indication: Pain
     Dates: start: 20210913, end: 20211002
  2. HERBALS\MITRAGYNINE [Suspect]
     Active Substance: HERBALS\MITRAGYNINE
     Indication: Pain
     Dates: start: 20210913, end: 20211002
  3. CRESTOR [Concomitant]
     Active Substance: ROSUVASTATIN CALCIUM
  4. OMEPRAZOLE [Concomitant]
     Active Substance: OMEPRAZOLE
  5. LYRICA [Concomitant]
     Active Substance: PREGABALIN
  6. BUPROPION HYDROCHLORIDE [Concomitant]
     Active Substance: BUPROPION HYDROCHLORIDE
  7. LOSARTAN [Concomitant]
     Active Substance: LOSARTAN
  8. AFLOPURINOL [Concomitant]
  9. ATORVASTATIN [Concomitant]
     Active Substance: ATORVASTATIN
  10. LEFLUNSMIDE [Concomitant]
  11. DULOXETINE [Concomitant]
     Active Substance: DULOXETINE
  12. DICLOFANAC GEL [Concomitant]
  13. MITRAGYNA SPECIOSA KRATOM ULTRA [Concomitant]
  14. MITRAGYNA SPECIOSA KRATOM ULTRA ENHANCED IND [Concomitant]

REACTIONS (1)
  - Substance use [None]

NARRATIVE: CASE EVENT DATE: 20211002
